FAERS Safety Report 4362176-4 (Version None)
Quarter: 2004Q2

REPORT INFORMATION
  Report Type: 
  Country: None (occurrence: None)
  Receive Date: 20040520
  Receipt Date: 20040520
  Transmission Date: 20050107
  Serious: Yes (Hospitalization)
  Sender: FDA-Public Use
  Company Number: None

PATIENT
  Age: 83 Year
  Sex: Male

DRUGS (2)
  1. TEQUIN [Suspect]
     Indication: PNEUMONIA
     Dosage: 400 MG IV PO
     Route: 042
     Dates: start: 20040428, end: 20040506
  2. TEQUIN [Suspect]
     Dosage: PO 400 MG
     Route: 048

REACTIONS (1)
  - HYPERGLYCAEMIA [None]
